FAERS Safety Report 13494068 (Version 11)
Quarter: 2017Q3

REPORT INFORMATION
  Report Type: Spontaneous
  Country: IE (occurrence: IE)
  Receive Date: 20170428
  Receipt Date: 20170731
  Transmission Date: 20171127
  Serious: Yes (Hospitalization, Other)
  Sender: FDA-Public Use
  Company Number: IE-MYLANLABS-2017M1025891

PATIENT

DRUGS (1)
  1. CLOZARIL [Suspect]
     Active Substance: CLOZAPINE
     Indication: SCHIZOPHRENIA
     Dosage: UNK
     Route: 048
     Dates: start: 20090713, end: 201704

REACTIONS (9)
  - Lung neoplasm malignant [Unknown]
  - Eosinophil count increased [Not Recovered/Not Resolved]
  - Off label use [Unknown]
  - White blood cell count increased [Not Recovered/Not Resolved]
  - Agranulocytosis [Recovered/Resolved]
  - Neutrophil count increased [Not Recovered/Not Resolved]
  - Platelet count increased [Recovered/Resolved]
  - Sepsis [Unknown]
  - Haemoglobin decreased [Not Recovered/Not Resolved]

NARRATIVE: CASE EVENT DATE: 20170327
